FAERS Safety Report 18226777 (Version 1)
Quarter: 2020Q3

REPORT INFORMATION
  Report Type: Spontaneous
  Country: NL (occurrence: NL)
  Receive Date: 20200903
  Receipt Date: 20200903
  Transmission Date: 20201103
  Serious: Yes (Hospitalization, Other)
  Sender: FDA-Public Use
  Company Number: NL-SCIEGEN-2020SCILIT00259

PATIENT
  Age: 62 Year
  Sex: Male

DRUGS (3)
  1. METFORMIN HYDROCHLORIDETABLETS [Suspect]
     Active Substance: METFORMIN HYDROCHLORIDE
     Indication: TYPE 2 DIABETES MELLITUS
     Route: 065
  2. CLOBETASOL [Interacting]
     Active Substance: CLOBETASOL
     Indication: PEMPHIGOID
     Route: 065
  3. METHOTREXATE. [Interacting]
     Active Substance: METHOTREXATE
     Indication: PRURITUS
     Route: 065

REACTIONS (2)
  - Lichen planus [Recovered/Resolved]
  - Pemphigoid [Recovered/Resolved]
